FAERS Safety Report 15202294 (Version 1)
Quarter: 2018Q3

REPORT INFORMATION
  Report Type: Spontaneous
  Country: BR (occurrence: BR)
  Receive Date: 20180726
  Receipt Date: 20180726
  Transmission Date: 20181010
  Serious: Yes (Disabling, Other)
  Sender: FDA-Public Use
  Company Number: BR-SA-2018SA165179

PATIENT
  Sex: Male
  Weight: 78 kg

DRUGS (6)
  1. CYCLOSPORINE. [Concomitant]
     Active Substance: CYCLOSPORINE
     Indication: IMMUNOSUPPRESSION
     Dosage: 1 DF, Q12H
     Route: 048
     Dates: start: 20180319
  2. GLIFAGE [Concomitant]
     Active Substance: METFORMIN HYDROCHLORIDE
     Dosage: 4 DF, QD
     Route: 048
     Dates: start: 20180319
  3. LANTUS SOLOSTAR [Suspect]
     Active Substance: INSULIN GLARGINE
     Indication: DIABETES MELLITUS
     Dosage: 20 IU, QD
     Route: 058
     Dates: start: 2008
  4. MYCOPHENOLATE SODIUM [Concomitant]
     Active Substance: MYCOPHENOLATE SODIUM
     Indication: IMMUNOSUPPRESSION
     Dosage: 4 DF, QD
     Route: 048
     Dates: start: 20180319
  5. AMLODIPINE [Concomitant]
     Active Substance: AMLODIPINE BESYLATE
     Indication: HYPERTENSION
     Dosage: 2 DF, QD
     Route: 048
     Dates: start: 20180319
  6. PREDNISONE. [Concomitant]
     Active Substance: PREDNISONE
     Indication: IMMUNOSUPPRESSION
     Dosage: 1.5 DF
     Route: 048
     Dates: start: 2008

REACTIONS (6)
  - Eye disorder [Unknown]
  - Blood glucose fluctuation [Unknown]
  - Ill-defined disorder [Unknown]
  - Eye disorder [Unknown]
  - Renal failure [Unknown]
  - Memory impairment [Unknown]

NARRATIVE: CASE EVENT DATE: 201712
